FAERS Safety Report 8849151 (Version 5)
Quarter: 2013Q3

REPORT INFORMATION
  Report Type: Report from Study
  Country: JP (occurrence: JP)
  Receive Date: 20121019
  Receipt Date: 20130725
  Transmission Date: 20140515
  Serious: Yes (Other)
  Sender: FDA-Public Use
  Company Number: PHHO2012JP014859

PATIENT
  Age: 38 Year
  Sex: Female
  Weight: 78 kg

DRUGS (6)
  1. EVEROLIMUS [Suspect]
     Indication: ANGIOMYOLIPOMA
     Dosage: 10 MG, QD
     Route: 048
     Dates: start: 20101007, end: 20110214
  2. EVEROLIMUS [Suspect]
     Dosage: 5 MG, QD
     Route: 048
     Dates: start: 20110215, end: 20121009
  3. ALEVIATIN [Concomitant]
     Indication: EPILEPSY
     Dosage: 200 MG, UNK
     Route: 048
  4. LAMICTAL [Concomitant]
     Indication: EPILEPSY
     Dosage: 300 MG, UNK
     Route: 048
  5. MYSTAN [Concomitant]
     Indication: EPILEPSY
     Dosage: 20 MG, UNK
     Route: 048
  6. DEPAKENE [Concomitant]
     Indication: EPILEPSY
     Dosage: 1400 MG, UNK
     Route: 048

REACTIONS (1)
  - Pancreatic carcinoma [Recovering/Resolving]
